FAERS Safety Report 20082078 (Version 3)
Quarter: 2021Q4

REPORT INFORMATION
  Report Type: Other
  Country: US (occurrence: None)
  Receive Date: 20211117
  Receipt Date: 20211201
  Transmission Date: 20220303
  Serious: Yes (Other)
  Sender: FDA-Public Use
  Company Number: US-ROCHE-2955483

PATIENT
  Age: 39 Year
  Sex: Female
  Weight: 90.800 kg

DRUGS (1)
  1. OCREVUS [Suspect]
     Active Substance: OCRELIZUMAB
     Indication: Relapsing multiple sclerosis
     Dosage: LAST DATE OF TREATMENT: 22/MAR/2021, ANTICIPATED DATE OF TREATMENT: 20/NOV/2021
     Route: 042
     Dates: start: 201811

REACTIONS (1)
  - COVID-19 [Recovered/Resolved]

NARRATIVE: CASE EVENT DATE: 20210901
